FAERS Safety Report 15088271 (Version 1)
Quarter: 2018Q2

REPORT INFORMATION
  Report Type: Spontaneous
  Country: FR (occurrence: FR)
  Receive Date: 20180629
  Receipt Date: 20180629
  Transmission Date: 20180711
  Serious: Yes (Hospitalization)
  Sender: FDA-Public Use
  Company Number: FR-TEVA-2018-FR-912859

PATIENT
  Age: 70 Year
  Sex: Female
  Weight: 68 kg

DRUGS (13)
  1. PRAVASTATINE ACCORD 20 MG TABLETS [Concomitant]
     Indication: PRODUCT USED FOR UNKNOWN INDICATION
     Dosage: 20 MILLIGRAM DAILY;
  2. ZAMUDOL L.P. 100 MG PROLONGED-RELEASE CAPSULES [Concomitant]
     Indication: PRODUCT USED FOR UNKNOWN INDICATION
     Dosage: SI DOULEUR
     Route: 048
  3. OROZAMUDOL 50 MG, ORODISPERSIBLE TABLET [Concomitant]
     Indication: PRODUCT USED FOR UNKNOWN INDICATION
     Dosage: SI DOULEUR
     Route: 048
  4. DOLIPRANE 500 MG POWDER FOR ORAL SOLUTION IN SACHET-DOSE [Concomitant]
     Indication: PRODUCT USED FOR UNKNOWN INDICATION
     Dosage: SI BESOIN
     Route: 048
  5. AMOXICILLIN. [Suspect]
     Active Substance: AMOXICILLIN
     Indication: OSTEOMYELITIS
     Route: 048
     Dates: start: 20180213, end: 20180228
  6. METRONIDAZOLE. [Suspect]
     Active Substance: METRONIDAZOLE
     Indication: OSTEOMYELITIS
     Dosage: 1500 MILLIGRAM DAILY;
     Route: 048
     Dates: start: 20180213, end: 20180228
  7. DIAMICRON 60 MG, SCORED TABLET WITH MODIFIED RELEASE [Concomitant]
     Active Substance: GLICLAZIDE
     Indication: PRODUCT USED FOR UNKNOWN INDICATION
     Dosage: 60 MILLIGRAM DAILY;
     Route: 048
  8. KARDEGIC [Concomitant]
     Active Substance: ASPIRIN DL-LYSINE
     Indication: PRODUCT USED FOR UNKNOWN INDICATION
     Dosage: 75 MILLIGRAM DAILY;
     Route: 048
  9. LANSOPRAZOLE MYLAN 30 MG, ORODISPERSIBLE TABLET [Concomitant]
     Indication: PRODUCT USED FOR UNKNOWN INDICATION
     Dosage: 30 MILLIGRAM DAILY;
     Route: 048
  10. AMLODIPINE ARROW GENERIC 5 MG HARD CAPSULES [Concomitant]
     Indication: PRODUCT USED FOR UNKNOWN INDICATION
     Dosage: 5 MILLIGRAM DAILY;
     Route: 048
  11. LAROXYL ROCHE 40 MG / ML, ORAL SOLUTION [Concomitant]
     Indication: PRODUCT USED FOR UNKNOWN INDICATION
     Dosage: 10 GTT DAILY;
     Route: 048
  12. JANUMET 50 MG / 1000 MG FILM-COATED TABLETS [Concomitant]
     Indication: PRODUCT USED FOR UNKNOWN INDICATION
     Route: 048
  13. COTAREG 80 MG / 12.5 MG FILM-COATED TABLETS [Concomitant]
     Indication: PRODUCT USED FOR UNKNOWN INDICATION
     Route: 048

REACTIONS (1)
  - Acute kidney injury [Recovered/Resolved]

NARRATIVE: CASE EVENT DATE: 20180228
